FAERS Safety Report 7853970-3 (Version None)
Quarter: 2011Q4

REPORT INFORMATION
  Report Type: 
  Country: None (occurrence: None)
  Receive Date: 20111026
  Receipt Date: 20111024
  Transmission Date: 20120403
  Serious: No
  Sender: FDA-Public Use
  Company Number: US-PFIZER INC-2011258436

PATIENT
  Sex: Male
  Weight: 86.168 kg

DRUGS (3)
  1. OMEPRAZOLE [Concomitant]
     Dosage: UNK, 1X/DAY
  2. ADVIL LIQUI-GELS [Suspect]
     Indication: HEADACHE
     Dosage: 200 MG, AS NEEDED
     Route: 048
     Dates: end: 20111001
  3. ADVIL LIQUI-GELS [Suspect]
     Indication: PAIN

REACTIONS (1)
  - DRUG INEFFECTIVE [None]
